FAERS Safety Report 5774967-3 (Version None)
Quarter: 2008Q2

REPORT INFORMATION
  Report Type: 
  Country: None (occurrence: None)
  Receive Date: 20080617
  Receipt Date: 20080604
  Transmission Date: 20081010
  Serious: Yes (Other)
  Sender: FDA-Public Use
  Company Number: US-AMGEN-KDL275972

PATIENT
  Sex: Female
  Weight: 82.5 kg

DRUGS (22)
  1. EPOGEN [Suspect]
     Indication: DIALYSIS
     Route: 058
     Dates: start: 20030409
  2. SENSIPAR [Concomitant]
     Indication: HYPERPARATHYROIDISM SECONDARY
     Route: 048
     Dates: start: 20080421
  3. ASCORBIC ACID [Concomitant]
     Route: 042
     Dates: start: 20071204
  4. DOXERCALCIFEROL [Concomitant]
     Route: 042
     Dates: start: 20071122
  5. LEVOCARNITINE [Concomitant]
     Route: 042
     Dates: start: 20080424
  6. DAPSONE [Concomitant]
     Route: 048
     Dates: start: 20070731
  7. DOCUSATE SODIUM [Concomitant]
     Route: 048
     Dates: start: 20070731
  8. FLUCONAZOLE [Concomitant]
     Route: 048
     Dates: start: 20070731
  9. FUROSEMIDE [Concomitant]
     Route: 048
     Dates: start: 20070731
  10. LANTHANUM CARBONATE [Concomitant]
     Route: 048
     Dates: start: 20070822
  11. MYCOPHENOLATE MOFETIL [Concomitant]
     Route: 048
     Dates: start: 20070731
  12. PANTOPRAZOLE SODIUM [Concomitant]
     Route: 048
     Dates: start: 20070731
  13. SIMVASTATIN [Concomitant]
     Route: 048
     Dates: start: 20070731
  14. TACROLIMUS [Concomitant]
     Route: 048
     Dates: start: 20070731
  15. SYNTHROID [Concomitant]
  16. DILTIAZEM [Concomitant]
  17. METOPROLOL [Concomitant]
  18. ALLEGRA [Concomitant]
     Route: 048
  19. FLONASE [Concomitant]
  20. NEPHRO-CAPS [Concomitant]
  21. PRINIVIL [Concomitant]
     Route: 048
  22. ASCORBIC ACID [Concomitant]
     Route: 048

REACTIONS (6)
  - DIARRHOEA [None]
  - FOLATE DEFICIENCY [None]
  - KIDNEY TRANSPLANT REJECTION [None]
  - PYELONEPHRITIS [None]
  - THERAPEUTIC RESPONSE DECREASED [None]
  - URINARY TRACT INFECTION [None]
